FAERS Safety Report 24693355 (Version 2)
Quarter: 2025Q2

REPORT INFORMATION
  Report Type: Report from Study
  Country: JP (occurrence: JP)
  Receive Date: 20241203
  Receipt Date: 20250629
  Transmission Date: 20250717
  Serious: Yes (Death, Hospitalization)
  Sender: ABBVIE
  Company Number: JP-ABBVIE-6029494

PATIENT
  Sex: Male

DRUGS (3)
  1. CARBIDOPA\LEVODOPA [Suspect]
     Active Substance: CARBIDOPA\LEVODOPA
     Indication: Parkinson^s disease
     Route: 050
  2. CARBIDOPA\LEVODOPA [Suspect]
     Active Substance: CARBIDOPA\LEVODOPA
  3. VYALEV [Suspect]
     Active Substance: FOSCARBIDOPA\FOSLEVODOPA
     Indication: Parkinson^s disease
     Route: 058

REACTIONS (1)
  - Parkinson^s disease [Fatal]
